FAERS Safety Report 7620648-0 (Version None)
Quarter: 2011Q3

REPORT INFORMATION
  Report Type: 
  Country: None (occurrence: None)
  Receive Date: 20110719
  Receipt Date: 20110715
  Transmission Date: 20111222
  Serious: Yes (Death, Hospitalization)
  Sender: FDA-Public Use
  Company Number: US-GLAXOSMITHKLINE-A0849317A

PATIENT
  Age: 47 Year
  Sex: Male

DRUGS (1)
  1. AVANDIA [Suspect]
     Indication: DIABETES MELLITUS
     Dosage: 4MG TWICE PER DAY
     Route: 048
     Dates: start: 20050402, end: 20060331

REACTIONS (20)
  - ISCHAEMIC CARDIOMYOPATHY [None]
  - GALLBLADDER DISORDER [None]
  - VOMITING [None]
  - TRANSIENT ISCHAEMIC ATTACK [None]
  - BACTERIAL INFECTION [None]
  - PSEUDOMONAS INFECTION [None]
  - ENTEROCOCCAL INFECTION [None]
  - PNEUMONIA ASPIRATION [None]
  - VOCAL CORD DISORDER [None]
  - PANCREATITIS [None]
  - MULTI-ORGAN DISORDER [None]
  - GASTROINTESTINAL DISORDER [None]
  - PNEUMONIA KLEBSIELLA [None]
  - CARDIAC DISORDER [None]
  - DEATH [None]
  - URINARY TRACT INFECTION [None]
  - IMPAIRED GASTRIC EMPTYING [None]
  - THROMBOSIS [None]
  - BLOOD PRESSURE ABNORMAL [None]
  - ULCER HAEMORRHAGE [None]
